FAERS Safety Report 8262069-6 (Version None)
Quarter: 2012Q2

REPORT INFORMATION
  Report Type: 
  Country: None (occurrence: None)
  Receive Date: 20120405
  Receipt Date: 20120403
  Transmission Date: 20120825
  Serious: Yes (Death, Hospitalization)
  Sender: FDA-Public Use
  Company Number: PHHO2012GB005306

PATIENT
  Sex: Male

DRUGS (4)
  1. CYTARABINE [Concomitant]
     Dosage: UNK
     Dates: start: 20120217, end: 20120224
  2. DAUNORUBICIN HCL [Concomitant]
     Dosage: UNK
     Dates: start: 20120217, end: 20120224
  3. EVEROLIMUS [Suspect]
     Dosage: 10 MG, UNK
     Dates: start: 20120312, end: 20120314
  4. EVEROLIMUS [Suspect]
     Indication: ACUTE MYELOID LEUKAEMIA
     Dosage: 5 MG, UNK
     Dates: start: 20120227, end: 20120311

REACTIONS (8)
  - PNEUMONIA [None]
  - NEUTROPENIC SEPSIS [None]
  - DIARRHOEA [None]
  - INFECTION [None]
  - HYPOTENSION [None]
  - BRADYCARDIA [None]
  - ENTEROCOCCUS TEST POSITIVE [None]
  - GENERAL PHYSICAL HEALTH DETERIORATION [None]
